FAERS Safety Report 9858402 (Version 1)
Quarter: 2014Q1

REPORT INFORMATION
  Report Type: Spontaneous
  Country: US (occurrence: None)
  Receive Date: 20140130
  Receipt Date: 20140130
  Transmission Date: 20141002
  Serious: Yes (Disabling)
  Sender: FDA-Public Use
  Company Number: None

PATIENT
  Age: 55 Year
  Sex: Female
  Weight: 61.24 kg

DRUGS (1)
  1. SYMBICORT [Suspect]
     Indication: ASTHMA
     Dosage: 2 PUFFS  TWICE DAILY  INHALATION
     Route: 055
     Dates: start: 20140128, end: 20140128

REACTIONS (5)
  - Drug hypersensitivity [None]
  - Throat irritation [None]
  - Burning sensation [None]
  - Swollen tongue [None]
  - Panic attack [None]
